FAERS Safety Report 6993168-4 (Version None)
Quarter: 2010Q3

REPORT INFORMATION
  Report Type: 
  Country: None (occurrence: None)
  Receive Date: 20100917
  Receipt Date: 20100504
  Transmission Date: 20110219
  Serious: No
  Sender: FDA-Public Use
  Company Number: US-ASTRAZENECA-2010SE20269

PATIENT
  Sex: Male
  Weight: 73.9 kg

DRUGS (10)
  1. SEROQUEL XR [Suspect]
     Route: 048
  2. SEROQUEL XR [Suspect]
     Route: 048
  3. EFFEXOR XR [Suspect]
     Route: 048
     Dates: start: 20080101
  4. EFFEXOR XR [Suspect]
     Route: 048
  5. CRESTOR [Concomitant]
  6. CLONAZEPAM [Concomitant]
  7. AMBIEN CR [Concomitant]
  8. METFORMIN [Concomitant]
  9. GLYBURIDE [Concomitant]
  10. LEVAMER FLEX PEN [Concomitant]

REACTIONS (2)
  - ANXIETY [None]
  - DRUG INEFFECTIVE [None]
